FAERS Safety Report 5741956-4 (Version None)
Quarter: 2008Q2

REPORT INFORMATION
  Report Type: 
  Country: None (occurrence: None)
  Receive Date: 20080519
  Receipt Date: 20080509
  Transmission Date: 20081010
  Serious: Yes (Hospitalization)
  Sender: FDA-Public Use
  Company Number: US-ELI_LILLY_AND_COMPANY-US200803003474

PATIENT
  Sex: Female
  Weight: 128.35 kg

DRUGS (1)
  1. ZYPREXA [Suspect]
     Indication: BIPOLAR DISORDER
     Dosage: 10 MG, UNK
     Dates: start: 19990101, end: 20070101

REACTIONS (5)
  - BIPOLAR DISORDER [None]
  - DIABETES MELLITUS [None]
  - DRUG INEFFECTIVE [None]
  - NECROBIOSIS LIPOIDICA DIABETICORUM [None]
  - RENAL FAILURE [None]
